FAERS Safety Report 4951936-4 (Version None)
Quarter: 2006Q1

REPORT INFORMATION
  Report Type: 
  Country: None (occurrence: None)
  Receive Date: 20060322
  Receipt Date: 20060322
  Transmission Date: 20060701
  Serious: No
  Sender: FDA-Public Use
  Company Number: None

PATIENT
  Age: 53 Year
  Sex: Male
  Weight: 86.1834 kg

DRUGS (1)
  1. NEXIUM [Suspect]
     Indication: GASTROOESOPHAGEAL REFLUX DISEASE
     Dosage: 40 MG BID PO
     Route: 048
     Dates: start: 20050301, end: 20060302

REACTIONS (5)
  - CHILLS [None]
  - ENERGY INCREASED [None]
  - FEELING ABNORMAL [None]
  - MUSCLE TIGHTNESS [None]
  - TREMOR [None]
